FAERS Safety Report 8812615 (Version 1)
Quarter: 2012Q4

REPORT INFORMATION
  Report Type: 
  Country: PT (occurrence: PT)
  Receive Date: 20120927
  Receipt Date: 20120927
  Transmission Date: 20130627
  Serious: Yes (Hospitalization)
  Sender: FDA-Public Use
  Company Number: PHHO2011PT05340

PATIENT
  Age: 55 Year
  Sex: Male

DRUGS (5)
  1. MYFORTIC [Suspect]
     Indication: RENAL TRANSPLANT
     Dosage: UNK
     Route: 048
  2. PROGRAF [Suspect]
     Indication: RENAL TRANSPLANT
     Dosage: UNK
     Route: 048
  3. SOTRASTAURIN [Suspect]
     Indication: RENAL TRANSPLANT
     Dosage: Code not broken
     Route: 048
     Dates: start: 20101116
  4. BLINDED STUDY MEDICATION [Suspect]
     Indication: RENAL TRANSPLANT
     Dosage: Code not broken
     Route: 048
     Dates: start: 20101116
  5. BLINDED NO TREATMENT RECEIVED [Suspect]
     Indication: RENAL TRANSPLANT
     Dosage: Code not broken
     Route: 048
     Dates: start: 20101116

REACTIONS (2)
  - Respiratory tract infection [Recovered/Resolved]
  - Pneumonia haemophilus [Recovered/Resolved]
